FAERS Safety Report 6551450-9 (Version None)
Quarter: 2010Q1

REPORT INFORMATION
  Report Type: 
  Country: None (occurrence: None)
  Receive Date: 20100122
  Receipt Date: 20091021
  Transmission Date: 20100710
  Serious: No
  Sender: FDA-Public Use
  Company Number: 2009-00683

PATIENT
  Age: 65 Year
  Sex: Female
  Weight: 99.7913 kg

DRUGS (7)
  1. COLD REMEDY GEL SWABS [Suspect]
     Dosage: Q4HR FOR 4-5DAYS/COLD/YR 1 YR AGO - RECENTLY
  2. COLD REMEDY GEL SWABS [Suspect]
     Dosage: Q4HR FOR 4-5DAYS/COLD/YR 1 YR AGO - RECENTLY
  3. ATENOLOL [Concomitant]
  4. DIOVAN [Concomitant]
  5. GLUCOPHAGE [Concomitant]
  6. CEFADROXIL (DURICEF) [Concomitant]
  7. ZANTAC [Concomitant]

REACTIONS (1)
  - ANOSMIA [None]
